FAERS Safety Report 6686950-4 (Version None)
Quarter: 2010Q2

REPORT INFORMATION
  Report Type: 
  Country: None (occurrence: None)
  Receive Date: 20100419
  Receipt Date: 20100415
  Transmission Date: 20101027
  Serious: Yes (Death, Hospitalization)
  Sender: FDA-Public Use
  Company Number: PHHO2009GB13578

PATIENT
  Sex: Female

DRUGS (1)
  1. AFINITOR [Suspect]
     Indication: METASTATIC RENAL CELL CARCINOMA
     Dosage: 10MGS/DAILY
     Route: 048
     Dates: start: 20091002, end: 20091027

REACTIONS (4)
  - BLOOD CREATININE INCREASED [None]
  - DEATH [None]
  - HAEMOGLOBIN DECREASED [None]
  - RENAL FAILURE [None]
